FAERS Safety Report 19816311 (Version 2)
Quarter: 2021Q3

REPORT INFORMATION
  Report Type: Spontaneous
  Country: DE (occurrence: DE)
  Receive Date: 20210909
  Receipt Date: 20210920
  Transmission Date: 20211014
  Serious: Yes (Death, Hospitalization, Other)
  Sender: FDA-Public Use
  Company Number: DE-GILEAD-2021-0547844

PATIENT
  Age: 80 Year
  Sex: Male
  Weight: 63 kg

DRUGS (16)
  1. ENOXAPARIN [Concomitant]
     Active Substance: ENOXAPARIN
  2. SODIUM CHLORIDE. [Concomitant]
     Active Substance: SODIUM CHLORIDE
  3. TORASEMID [Concomitant]
     Active Substance: TORSEMIDE
  4. SULFAMETHOXAZOL;TRIMETOPRIM [Concomitant]
     Active Substance: SULFAMETHOXAZOLE\TRIMETHOPRIM
  5. METOPROLOL. [Concomitant]
     Active Substance: METOPROLOL
  6. SPIRONOLACTONE. [Concomitant]
     Active Substance: SPIRONOLACTONE
  7. BIKTARVY [Suspect]
     Active Substance: BICTEGRAVIR SODIUM\EMTRICITABINE\TENOFOVIR ALAFENAMIDE FUMARATE
     Indication: PRODUCT USED FOR UNKNOWN INDICATION
     Dosage: 25|50|200 MG, 0?0?1?0
     Route: 065
  8. PIPERACILLIN AND TAZOBACTAM [Concomitant]
     Active Substance: PIPERACILLIN SODIUM\TAZOBACTAM SODIUM
  9. AMBROXOL [Concomitant]
     Active Substance: AMBROXOL
  10. RAMIPRIL. [Concomitant]
     Active Substance: RAMIPRIL
  11. AZITHROMYCIN ANHYDROUS. [Concomitant]
     Active Substance: AZITHROMYCIN ANHYDROUS
  12. PREGABALIN. [Concomitant]
     Active Substance: PREGABALIN
  13. ATORVASTATIN [Concomitant]
     Active Substance: ATORVASTATIN
  14. ACETYLSALICYLIC ACID [Concomitant]
     Active Substance: ASPIRIN
  15. INSULIN GLARGINE [Concomitant]
     Active Substance: INSULIN GLARGINE
  16. INSULIN GLULISINE [Concomitant]
     Active Substance: INSULIN GLULISINE

REACTIONS (15)
  - Erythema [Unknown]
  - Anaemia [Unknown]
  - Systemic infection [Unknown]
  - General physical health deterioration [Unknown]
  - Dyspnoea [Unknown]
  - Feeling hot [Unknown]
  - Wound [Unknown]
  - Electrocardiogram abnormal [Unknown]
  - Hyperglycaemia [Unknown]
  - Pneumonia [Unknown]
  - Cough [Unknown]
  - Death [Fatal]
  - Tachypnoea [Unknown]
  - Condition aggravated [Unknown]
  - Skin hyperpigmentation [Unknown]

NARRATIVE: CASE EVENT DATE: 20210126
